FAERS Safety Report 12251103 (Version 1)
Quarter: 2016Q2

REPORT INFORMATION
  Report Type: Spontaneous
  Country: US (occurrence: US)
  Receive Date: 20160410
  Receipt Date: 20160410
  Transmission Date: 20160815
  Serious: No
  Sender: FDA-Public Use
  Company Number: US-JNJFOC-20160314122

PATIENT
  Age: 39 Year
  Sex: Female
  Weight: 56.7 kg

DRUGS (4)
  1. ZYRTEC [Suspect]
     Active Substance: CETIRIZINE HYDROCHLORIDE
     Route: 065
  2. ZYRTEC [Suspect]
     Active Substance: CETIRIZINE HYDROCHLORIDE
     Indication: HISTAMINE INTOLERANCE
     Route: 065
  3. CHILDRENS BENADRYL ALLERGY [Suspect]
     Active Substance: DIPHENHYDRAMINE HYDROCHLORIDE
     Indication: HISTAMINE INTOLERANCE
     Dosage: 3 TO 4 TIMES A DAY
     Route: 048
     Dates: start: 20160311
  4. BENADRYL ALLERGY LIQUI-GELS [Suspect]
     Active Substance: DIPHENHYDRAMINE HYDROCHLORIDE
     Indication: HISTAMINE INTOLERANCE
     Dosage: 3 TO 4 TIMES PER DAY
     Route: 048
     Dates: start: 20160311, end: 20160313

REACTIONS (4)
  - Drug administration error [Not Recovered/Not Resolved]
  - Product use issue [Not Recovered/Not Resolved]
  - Off label use [Not Recovered/Not Resolved]
  - Rash erythematous [Not Recovered/Not Resolved]

NARRATIVE: CASE EVENT DATE: 20160311
